FAERS Safety Report 11944708 (Version 1)
Quarter: 2016Q1

REPORT INFORMATION
  Report Type: Spontaneous
  Country: FR (occurrence: FR)
  Receive Date: 20160125
  Receipt Date: 20160125
  Transmission Date: 20160526
  Serious: Yes (Life-Threatening, Hospitalization, Other)
  Sender: FDA-Public Use
  Company Number: FR-MEDTRONIC-1046852

PATIENT
  Age: 58 Year
  Sex: Male

DRUGS (7)
  1. REMIFENTANIL HOSPIRA REMIFENTANIL HYDROCHLORIDE [Suspect]
     Active Substance: REMIFENTANIL
     Route: 042
     Dates: start: 20150603, end: 20150603
  2. TERCIAN CYAMEMAZINE [Suspect]
     Active Substance: CYAMEMAZINE
     Route: 048
  3. OXAZEPAM. [Suspect]
     Active Substance: OXAZEPAM
     Route: 048
  4. BUPIVACAINE HYDROCHLORIDE. [Suspect]
     Active Substance: BUPIVACAINE HYDROCHLORIDE
     Route: 048
     Dates: start: 20150603, end: 20150603
  5. BENZODIAPINES [Suspect]
     Active Substance: BENZODIAZEPINE
  6. BACLOFEN UNKNOWN [Suspect]
     Active Substance: BACLOFEN
     Route: 037
  7. OPOIDS [Suspect]
     Active Substance: UNSPECIFIED INGREDIENT

REACTIONS (13)
  - Cardiac arrest [Recovered/Resolved]
  - Autonomic nervous system imbalance [None]
  - Drug withdrawal syndrome [None]
  - Coma [None]
  - Urine analysis abnormal [None]
  - Blood alcohol increased [None]
  - Self-medication [None]
  - Pupils unequal [None]
  - Inguinal hernia [None]
  - Cardio-respiratory arrest [None]
  - Loss of consciousness [None]
  - Ventricular tachycardia [None]
  - Drug screen positive [None]

NARRATIVE: CASE EVENT DATE: 20150603
